FAERS Safety Report 23971472 (Version 1)
Quarter: 2024Q2

REPORT INFORMATION
  Report Type: Spontaneous
  Country: US (occurrence: US)
  Receive Date: 20240613
  Receipt Date: 20240613
  Transmission Date: 20240716
  Serious: No
  Sender: FDA-Public Use
  Company Number: US-TEVA-VS-3206140

PATIENT
  Age: 35 Year
  Sex: Male

DRUGS (1)
  1. QNASL [Suspect]
     Active Substance: BECLOMETHASONE DIPROPIONATE
     Indication: Product used for unknown indication
     Dosage: 80MCG
     Route: 065

REACTIONS (4)
  - Malaise [Unknown]
  - Dizziness [Unknown]
  - Ear haemorrhage [Unknown]
  - Ear infection [Unknown]
